FAERS Safety Report 14397085 (Version 1)
Quarter: 2018Q1

REPORT INFORMATION
  Report Type: Spontaneous
  Country: US (occurrence: US)
  Receive Date: 20180116
  Receipt Date: 20180116
  Transmission Date: 20180509
  Serious: No
  Sender: FDA-Public Use
  Company Number: US-ALLERGAN-1747663US

PATIENT
  Sex: Female

DRUGS (1)
  1. BOTOX [Suspect]
     Active Substance: ONABOTULINUMTOXINA
     Indication: PRODUCT USED FOR UNKNOWN INDICATION
     Dosage: 200 UNITS, SINGLE
     Dates: start: 201707, end: 201707

REACTIONS (2)
  - Drug ineffective [Unknown]
  - Dysphagia [Unknown]

NARRATIVE: CASE EVENT DATE: 201708
